FAERS Safety Report 17190760 (Version 2)
Quarter: 2020Q1

REPORT INFORMATION
  Report Type: Report from Study
  Country: US (occurrence: US)
  Receive Date: 20191223
  Receipt Date: 20200114
  Transmission Date: 20200409
  Serious: Yes (Other)
  Sender: FDA-Public Use
  Company Number: NVSC2019US076664

PATIENT
  Sex: Female

DRUGS (4)
  1. INC424A [Suspect]
     Active Substance: RUXOLITINIB
     Indication: OVARIAN EPITHELIAL CANCER
     Dosage: 5 MG, BID
     Route: 048
     Dates: start: 20190910
  2. TAZEMETOSTAT [Concomitant]
     Active Substance: TAZEMETOSTAT
     Indication: PRODUCT USED FOR UNKNOWN INDICATION
     Dosage: 5 MILLIGRAM, BID D1-D21 OF EACH 21 DAY CYCLE
     Route: 048
  3. CARBOPLATIN FOR INJECTION [Suspect]
     Active Substance: CARBOPLATIN
     Indication: OVARIAN EPITHELIAL CANCER
     Dosage: AUC 4 ON D1 OF EACH 21 DAY CYCLE
     Route: 042
     Dates: start: 20190910
  4. PACLITAXEL. [Suspect]
     Active Substance: PACLITAXEL
     Indication: OVARIAN EPITHELIAL CANCER
     Dosage: 70 MG/M2 ON D1 AND D8 OF EACH 21 DAY CYCLE
     Route: 042
     Dates: start: 20190910

REACTIONS (2)
  - Anaemia [Recovered/Resolved]
  - Overdose [Recovered/Resolved]

NARRATIVE: CASE EVENT DATE: 20191113
